FAERS Safety Report 15852128 (Version 3)
Quarter: 2019Q2

REPORT INFORMATION
  Report Type: Spontaneous
  Country: US (occurrence: US)
  Receive Date: 20190122
  Receipt Date: 20190410
  Transmission Date: 20190711
  Serious: Yes (Hospitalization)
  Sender: FDA-Public Use
  Company Number: US-SA-2019SA013345

PATIENT
  Sex: Male

DRUGS (4)
  1. LUMIZYME [Suspect]
     Active Substance: ALGLUCOSIDASE ALFA
     Route: 041
  2. MORPHINE SALT NOT SPECIFIED [Suspect]
     Active Substance: MORPHINE
  3. BACLOFEN. [Concomitant]
     Active Substance: BACLOFEN
  4. PRIALT [Suspect]
     Active Substance: ZICONOTIDE ACETATE
     Dosage: UNK

REACTIONS (3)
  - Mood altered [Unknown]
  - Drug withdrawal syndrome [Unknown]
  - Dehydration [Not Recovered/Not Resolved]

NARRATIVE: CASE EVENT DATE: 201812
